FAERS Safety Report 21296558 (Version 1)
Quarter: 2022Q3

REPORT INFORMATION
  Report Type: Spontaneous
  Country: DE (occurrence: DE)
  Receive Date: 20220906
  Receipt Date: 20220906
  Transmission Date: 20221027
  Serious: Yes (Hospitalization)
  Sender: FDA-Public Use
  Company Number: DE-NOVARTISPH-NVSC2022DE196080

PATIENT
  Age: 83 Year
  Sex: Male
  Weight: 70 kg

DRUGS (11)
  1. TAMSULOSIN [Suspect]
     Active Substance: TAMSULOSIN
     Indication: Product used for unknown indication
     Dosage: UNK
     Route: 048
  2. TAMSULOSIN [Suspect]
     Active Substance: TAMSULOSIN
     Dosage: UNK UNK, QD (ASSEMD OVERDOSE)
     Route: 048
     Dates: start: 20220811
  3. TAMSULOSIN [Suspect]
     Active Substance: TAMSULOSIN
     Dosage: UNK, QD (ASSEMD OVERDOSE), LAST ADMINISTRATION
     Route: 048
     Dates: start: 20220811
  4. RISPERIDONE [Suspect]
     Active Substance: RISPERIDONE
     Indication: Product used for unknown indication
     Dosage: UNK
     Route: 048
  5. RISPERIDONE [Suspect]
     Active Substance: RISPERIDONE
     Dosage: UNK UNK, QD, ASSEMD OVERDOSE
     Route: 048
     Dates: start: 20220811
  6. RISPERIDONE [Suspect]
     Active Substance: RISPERIDONE
     Dosage: UNK UNK, QD, ASSEMD OVERDOSE (LAST ADMINISTRATION)
     Route: 048
     Dates: start: 20220811
  7. NEBIVOLOL [Suspect]
     Active Substance: NEBIVOLOL
     Indication: Product used for unknown indication
     Dosage: UNK
     Route: 065
  8. NEBIVOLOL [Suspect]
     Active Substance: NEBIVOLOL
     Dosage: UNK UNK, QD (ASSEMD OVERDOSE )
     Route: 048
     Dates: start: 20220811
  9. NEBIVOLOL [Suspect]
     Active Substance: NEBIVOLOL
     Dosage: UNK UNK, QD,(ASSEMD OVERDOSE), LAST ADMINISTRATION
     Route: 048
     Dates: start: 20220811
  10. CANDESARTAN CILEXETIL [Suspect]
     Active Substance: CANDESARTAN CILEXETIL
     Indication: Product used for unknown indication
     Dosage: UNK UNK, QD, ASSEMD OVERDOSE
     Route: 048
     Dates: start: 20220811
  11. CANDESARTAN CILEXETIL [Suspect]
     Active Substance: CANDESARTAN CILEXETIL
     Dosage: UNK, QD, ASSEMD OVERDOSE (LAST ADMINISTRATION)
     Route: 048
     Dates: start: 20220811

REACTIONS (2)
  - Blood pressure increased [Unknown]
  - Overdose [Unknown]

NARRATIVE: CASE EVENT DATE: 20220811
